FAERS Safety Report 4795847-6 (Version None)
Quarter: 2005Q4

REPORT INFORMATION
  Report Type: 
  Country: None (occurrence: None)
  Receive Date: 20051012
  Receipt Date: 20051006
  Transmission Date: 20060501
  Serious: Yes (Life-Threatening, Hospitalization, Disabling, Other)
  Sender: FDA-Public Use
  Company Number: 2005GB01948

PATIENT
  Sex: Female

DRUGS (1)
  1. IRESSA [Suspect]
     Indication: BREAST CANCER
     Route: 048

REACTIONS (1)
  - MYOCARDIAL INFARCTION [None]
